FAERS Safety Report 4310929-0 (Version None)
Quarter: 2004Q1

REPORT INFORMATION
  Report Type: 
  Country: None (occurrence: None)
  Receive Date: 20040302
  Receipt Date: 20040217
  Transmission Date: 20041129
  Serious: Yes (Hospitalization)
  Sender: FDA-Public Use
  Company Number: 04P-163-0250852-00

PATIENT
  Age: 43 Year
  Sex: Male

DRUGS (4)
  1. KALETRA SOFT GELATIN CAPSULES (KALETRA) (LOPINAVIR/RITONAVIR) (LOPINAV [Suspect]
     Indication: HIV INFECTION
     Dosage: 4 CAPSULE, 2 IN 1 D, PER ORAL
     Route: 048
     Dates: start: 20030709, end: 20030909
  2. TENOFOVIR [Suspect]
     Indication: HIV INFECTION
     Dosage: 300 MG, 1 IN 1 D, PER ORAL
     Route: 048
     Dates: start: 20030520, end: 20030909
  3. ABACAVIR SULFATE [Suspect]
     Indication: HIV INFECTION
     Dosage: 300 MG, 2 IN 1 D, PER ORAL
     Route: 048
     Dates: start: 20030709, end: 20030909
  4. LAMIVUDINE [Suspect]
     Dosage: 300 MG, 1 IN 1 D, PER ORAL
     Route: 048
     Dates: start: 20030520, end: 20030909

REACTIONS (1)
  - RENAL FAILURE [None]
